FAERS Safety Report 19726346 (Version 3)
Quarter: 2021Q4

REPORT INFORMATION
  Report Type: Spontaneous
  Country: US (occurrence: US)
  Receive Date: 20210819
  Receipt Date: 20211004
  Transmission Date: 20220303
  Serious: No
  Sender: FDA-Public Use
  Company Number: NVSC2021US185237

PATIENT
  Sex: Female

DRUGS (1)
  1. XIIDRA [Suspect]
     Active Substance: LIFITEGRAST
     Indication: Dry eye
     Dosage: UNK
     Route: 047

REACTIONS (6)
  - Tongue discomfort [Unknown]
  - Gingival discomfort [Unknown]
  - Oral pain [Unknown]
  - Hypersensitivity [Unknown]
  - Swollen tongue [Unknown]
  - Gingival swelling [Unknown]
